FAERS Safety Report 7454242-1 (Version None)
Quarter: 2011Q2

REPORT INFORMATION
  Report Type: 
  Country: None (occurrence: None)
  Receive Date: 20110503
  Receipt Date: 20110420
  Transmission Date: 20111010
  Serious: Yes (Hospitalization)
  Sender: FDA-Public Use
  Company Number: US-EISAI INC-E7273-00225-CLI-US

PATIENT
  Age: 66 Year
  Sex: Male
  Weight: 73.8 kg

DRUGS (4)
  1. TARGRETIN [Suspect]
     Route: 048
     Dates: start: 20110403
  2. DECITABINE [Suspect]
     Route: 042
     Dates: start: 20110311
  3. TARGRETIN [Suspect]
     Route: 048
     Dates: start: 20110412
  4. DECITABINE [Suspect]
     Route: 042
     Dates: start: 20110416

REACTIONS (2)
  - CELLULITIS ORBITAL [None]
  - FEBRILE NEUTROPENIA [None]
